FAERS Safety Report 10538817 (Version 1)
Quarter: 2014Q4

REPORT INFORMATION
  Report Type: Spontaneous
  Country: IT (occurrence: IT)
  Receive Date: 20141023
  Receipt Date: 20141023
  Transmission Date: 20150529
  Serious: Yes (Hospitalization)
  Sender: FDA-Public Use
  Company Number: IT-BAYER-2014-152045

PATIENT
  Age: 59 Year
  Sex: Male

DRUGS (7)
  1. CIPROXIN 500 MG FILM-COATED TABLETS [Suspect]
     Active Substance: CIPROFLOXACIN
     Indication: PYREXIA
  2. TORA-DOL [Suspect]
     Active Substance: KETOROLAC TROMETHAMINE
     Indication: MYALGIA
     Dosage: 10 MG, QD
     Route: 048
     Dates: start: 20141008, end: 20141008
  3. COCAINE [Concomitant]
     Active Substance: COCAINE
     Dosage: UNK
  4. CIPROXIN 500 MG FILM-COATED TABLETS [Suspect]
     Active Substance: CIPROFLOXACIN
     Indication: LUNG INFECTION
     Dosage: 500 MG, QD
     Route: 048
     Dates: start: 20141001, end: 20141008
  5. VOLTAREN [Suspect]
     Active Substance: DICLOFENAC SODIUM
     Indication: MYALGIA
     Dosage: 75 MG, PRN
     Route: 030
     Dates: start: 20141008, end: 20141008
  6. AULIN [Suspect]
     Active Substance: NIMESULIDE
     Indication: MYALGIA
     Dosage: 100 MG, QD
     Route: 048
     Dates: start: 20141008, end: 20141008
  7. LIXIDOL [Suspect]
     Active Substance: KETOROLAC TROMETHAMINE
     Indication: MYALGIA
     Dosage: 10 MG, QD
     Route: 048
     Dates: start: 20141008, end: 20141008

REACTIONS (5)
  - Respiratory failure [Unknown]
  - Coma [Unknown]
  - Vomiting [Unknown]
  - Epilepsy [Unknown]
  - Drug abuse [Unknown]

NARRATIVE: CASE EVENT DATE: 20141008
